FAERS Safety Report 23559284 (Version 1)
Quarter: 2024Q1

REPORT INFORMATION
  Report Type: Spontaneous
  Country: US (occurrence: None)
  Receive Date: 20240222
  Receipt Date: 20240222
  Transmission Date: 20240410
  Serious: Yes (Disabling, Other)
  Sender: FDA-Public Use
  Company Number: None

PATIENT
  Age: 36 Year
  Sex: Female
  Weight: 58.5 kg

DRUGS (7)
  1. DOTAREM [Suspect]
     Active Substance: GADOTERATE MEGLUMINE
     Indication: Magnetic resonance imaging
     Dates: start: 20231018
  2. GABAPENTIN [Concomitant]
     Active Substance: GABAPENTIN
  3. BACLOFEN [Concomitant]
     Active Substance: BACLOFEN
  4. Oxcarbazeprine [Concomitant]
  5. Hydroxycloriquine Low Dose [Concomitant]
  6. NALTREXONE [Concomitant]
     Active Substance: NALTREXONE
  7. ALPHA LIPOIC ACID [Concomitant]
     Active Substance: .ALPHA.-LIPOIC ACID

REACTIONS (12)
  - Tremor [None]
  - Oral discomfort [None]
  - Neuralgia [None]
  - Feeling cold [None]
  - Pain of skin [None]
  - Bladder disorder [None]
  - Dysgeusia [None]
  - Food allergy [None]
  - Urinary incontinence [None]
  - Burning sensation [None]
  - Gait disturbance [None]
  - Pain [None]

NARRATIVE: CASE EVENT DATE: 20231018
